FAERS Safety Report 15124349 (Version 1)
Quarter: 2018Q3

REPORT INFORMATION
  Report Type: Spontaneous
  Country: UA (occurrence: UA)
  Receive Date: 20180710
  Receipt Date: 20180710
  Transmission Date: 20181010
  Serious: Yes (Other)
  Sender: FDA-Public Use
  Company Number: UA-TEVA-2018-UA-921764

PATIENT
  Age: 60 Year
  Sex: Female

DRUGS (1)
  1. VAZAR H [Suspect]
     Active Substance: HYDROCHLOROTHIAZIDE\VALSARTAN
     Route: 065

REACTIONS (3)
  - Weight decreased [Unknown]
  - Asthenia [Unknown]
  - Seizure [Unknown]
